FAERS Safety Report 5844410-4 (Version None)
Quarter: 2008Q3

REPORT INFORMATION
  Report Type: 
  Country: None (occurrence: None)
  Receive Date: 20080808
  Receipt Date: 20080729
  Transmission Date: 20090109
  Serious: Yes (Hospitalization)
  Sender: FDA-Public Use
  Company Number: 2008JP003482

PATIENT
  Age: 81 Year
  Sex: Female

DRUGS (7)
  1. PROGRAF [Suspect]
     Indication: RHEUMATOID ARTHRITIS
     Dosage: 1.5 MG, /D, ORAL
     Route: 048
     Dates: start: 20080630, end: 20080710
  2. MUCOSOL-10 [Suspect]
     Dosage: 15 MG, /D, ORAL
     Route: 048
     Dates: start: 20080630, end: 20080707
  3. PREDNISILONE (PREDNISOLONE) [Concomitant]
  4. D ALFA (ALFACALCIDOL) [Concomitant]
  5. TAKEPRON (LANSOPRAZOLE) ORODISPERSIBLE CR TABLET [Concomitant]
  6. MOHRUS (KETOPROFEN) TAPE [Concomitant]
  7. LEVOFLOXACIN [Concomitant]

REACTIONS (1)
  - MELAENA [None]
